FAERS Safety Report 4586656-1 (Version None)
Quarter: 2005Q1

REPORT INFORMATION
  Report Type: 
  Country: None (occurrence: None)
  Receive Date: 20050218
  Receipt Date: 20041004
  Transmission Date: 20050727
  Serious: Yes (Other)
  Sender: FDA-Public Use
  Company Number: US-BRISTOL-MYERS SQUIBB COMPANY-12720736

PATIENT
  Age: 48 Year
  Sex: Female
  Weight: 69 kg

DRUGS (5)
  1. TAXOL [Suspect]
     Indication: BREAST CANCER
     Dosage: 06-JUL-2004 (CYCLE 1) AND 09-AUG-2004 (CYCLE 2)
     Route: 042
     Dates: start: 20040706, end: 20040809
  2. KYTRIL [Concomitant]
     Indication: PREMEDICATION
     Route: 042
  3. DEXAMETHASONE [Concomitant]
     Indication: PREMEDICATION
     Route: 042
  4. BENADRYL [Concomitant]
     Indication: PREMEDICATION
     Route: 042
  5. TAGAMET [Concomitant]
     Indication: PREMEDICATION
     Route: 042

REACTIONS (1)
  - HYPERSENSITIVITY [None]
